FAERS Safety Report 23118565 (Version 3)
Quarter: 2025Q1

REPORT INFORMATION
  Report Type: Report from Study
  Country: CO (occurrence: CO)
  Receive Date: 20231028
  Receipt Date: 20250110
  Transmission Date: 20250409
  Serious: Yes (Death, Hospitalization)
  Sender: NOVARTIS
  Company Number: CO-002147023-NVSC2023CO231104

PATIENT
  Sex: Male

DRUGS (2)
  1. ELTROMBOPAG OLAMINE [Suspect]
     Active Substance: ELTROMBOPAG OLAMINE
     Indication: Aplastic anaemia
     Dosage: 150 MG, QD
     Route: 048
     Dates: start: 2021
  2. CYCLOSPORINE [Suspect]
     Active Substance: CYCLOSPORINE
     Indication: Product used for unknown indication
     Route: 065

REACTIONS (7)
  - Cerebrovascular accident [Fatal]
  - Decreased immune responsiveness [Unknown]
  - Haemoglobin decreased [Unknown]
  - Ocular discomfort [Unknown]
  - Ear pain [Unknown]
  - Sinusitis [Unknown]
  - Glossitis [Unknown]
